FAERS Safety Report 17615705 (Version 1)
Quarter: 2020Q2

REPORT INFORMATION
  Report Type: Spontaneous
  Country: IT (occurrence: IT)
  Receive Date: 20200402
  Receipt Date: 20200402
  Transmission Date: 20200713
  Serious: Yes (Other)
  Sender: FDA-Public Use
  Company Number: IT-ELI_LILLY_AND_COMPANY-IT202003011094

PATIENT
  Sex: Female

DRUGS (2)
  1. RAMUCIRUMAB [Suspect]
     Active Substance: RAMUCIRUMAB
     Indication: GASTROINTESTINAL ADENOCARCINOMA
     Dosage: 8 MG/KG, CYCLICAL
     Route: 065
     Dates: start: 201609, end: 201705
  2. PACLITAXEL. [Concomitant]
     Active Substance: PACLITAXEL
     Indication: GASTROINTESTINAL ADENOCARCINOMA
     Dosage: 80 MG/M2, CYCLICAL
     Route: 065
     Dates: start: 201609

REACTIONS (4)
  - Neurotoxicity [Recovering/Resolving]
  - Osteolysis [Unknown]
  - Therapy partial responder [Unknown]
  - Malignant neoplasm progression [Unknown]

NARRATIVE: CASE EVENT DATE: 201705
